FAERS Safety Report 5243981-9 (Version None)
Quarter: 2007Q1

REPORT INFORMATION
  Report Type: 
  Country: None (occurrence: None)
  Receive Date: 20070215
  Receipt Date: 20070205
  Transmission Date: 20070707
  Serious: Yes (Death)
  Sender: FDA-Public Use
  Company Number: 2007SP000877

PATIENT
  Age: 64 Year
  Sex: Male
  Weight: 88 kg

DRUGS (2)
  1. TEMODAL [Suspect]
     Indication: GLIOBLASTOMA MULTIFORME
     Dosage: 75 MG/M2;PO
     Route: 048
     Dates: start: 20061115, end: 20061205
  2. RADIOTHERAPY (THERAPEUTIC RADIOHARMACEUTICALS) [Suspect]
     Indication: GLIOBLASTOMA MULTIFORME

REACTIONS (4)
  - ASTHENIA [None]
  - FATIGUE [None]
  - GENERAL PHYSICAL HEALTH DETERIORATION [None]
  - URINARY INCONTINENCE [None]
